FAERS Safety Report 6446903-8 (Version None)
Quarter: 2009Q4

REPORT INFORMATION
  Report Type: 
  Country: None (occurrence: None)
  Receive Date: 20091119
  Receipt Date: 20091110
  Transmission Date: 20100525
  Serious: Yes (Hospitalization)
  Sender: FDA-Public Use
  Company Number: US-CELGENEUS-163-21880-09110818

PATIENT
  Sex: Male

DRUGS (4)
  1. REVLIMID [Suspect]
     Indication: MULTIPLE MYELOMA
     Route: 048
     Dates: start: 20090301
  2. REVLIMID [Suspect]
     Route: 048
     Dates: start: 20061201
  3. REVLIMID [Suspect]
     Route: 048
     Dates: start: 20070101, end: 20090101
  4. ASPIRIN [Concomitant]
     Indication: DRUG USE FOR UNKNOWN INDICATION
     Route: 065

REACTIONS (3)
  - GASTRITIS [None]
  - HYPERCALCAEMIA [None]
  - OESOPHAGITIS [None]
